FAERS Safety Report 10525556 (Version 2)
Quarter: 2014Q4

REPORT INFORMATION
  Report Type: Report from Study
  Country: DE (occurrence: DE)
  Receive Date: 20141017
  Receipt Date: 20141017
  Transmission Date: 20150528
  Serious: Yes (Life-Threatening, Hospitalization)
  Sender: FDA-Public Use
  Company Number: DE-GILEAD-2014-0104176

PATIENT
  Age: 57 Year
  Sex: Male
  Weight: 68 kg

DRUGS (18)
  1. RIBASPHERE [Suspect]
     Active Substance: RIBAVIRIN
     Dosage: 200 MG, QD
     Route: 048
     Dates: start: 20140527, end: 20140527
  2. URSOFALK [Concomitant]
     Active Substance: URSODIOL
     Indication: GAMMA-GLUTAMYLTRANSFERASE INCREASED
     Route: 048
     Dates: start: 201303
  3. CARVEDILOL. [Concomitant]
     Active Substance: CARVEDILOL
     Indication: VARICES OESOPHAGEAL
     Route: 048
     Dates: start: 201403
  4. LEDIPASVIR/SOFOSBUVIR [Suspect]
     Active Substance: LEDIPASVIR\SOFOSBUVIR
     Indication: HEPATITIS C
     Dosage: 1 DF, QD
     Route: 048
     Dates: start: 20140402, end: 20140624
  5. RIBASPHERE [Suspect]
     Active Substance: RIBAVIRIN
     Dosage: 600 MG, QD
     Route: 048
     Dates: start: 20140402, end: 20140513
  6. TOREM                              /01036501/ [Concomitant]
     Active Substance: TORSEMIDE
     Indication: ASCITES
     Route: 048
     Dates: start: 201303
  7. FAMOTIDIN [Concomitant]
     Indication: PROPHYLAXIS
     Dosage: UNK
     Route: 048
     Dates: start: 20140410, end: 20140605
  8. DEXPANTHENOL. [Concomitant]
     Active Substance: DEXPANTHENOL
     Indication: HYPERSENSITIVITY
     Route: 061
     Dates: start: 20140510
  9. TROMCARDIN [Concomitant]
     Indication: ELECTROLYTE SUBSTITUTION THERAPY
     Route: 048
     Dates: start: 201403
  10. XIFAXAN [Concomitant]
     Active Substance: RIFAXIMIN
     Indication: ENCEPHALOPATHY
     Route: 048
     Dates: start: 201303
  11. LACTULOSE. [Concomitant]
     Active Substance: LACTULOSE
     Indication: ENCEPHALOPATHY
     Route: 048
     Dates: start: 201306
  12. DOXEPIN [Concomitant]
     Active Substance: DOXEPIN
     Indication: DEPRESSION
     Route: 048
     Dates: start: 201211
  13. HUMATIN [Concomitant]
     Active Substance: PAROMOMYCIN SULFATE
     Indication: ENCEPHALOPATHY
     Route: 048
     Dates: start: 201403
  14. HEPA MERZ [Concomitant]
     Indication: ENCEPHALOPATHY
     Route: 048
     Dates: start: 201304
  15. SPIRONOLACTON [Concomitant]
     Active Substance: SPIRONOLACTONE
     Indication: ASCITES
     Route: 048
     Dates: start: 201403
  16. DEXPANTHENOL. [Concomitant]
     Active Substance: DEXPANTHENOL
     Route: 061
     Dates: start: 20140510, end: 20140527
  17. RIBASPHERE [Suspect]
     Active Substance: RIBAVIRIN
     Indication: HEPATITIS C
     Dosage: 400 MG, QD
     Route: 048
     Dates: start: 20140514, end: 20140526
  18. FAMOTIDIN [Concomitant]
     Route: 048
     Dates: start: 20140410, end: 20140605

REACTIONS (4)
  - Anaemia [Not Recovered/Not Resolved]
  - Platelet count decreased [None]
  - Ascites [None]
  - Hepatic failure [None]

NARRATIVE: CASE EVENT DATE: 20140524
